FAERS Safety Report 6531168-9 (Version None)
Quarter: 2010Q1

REPORT INFORMATION
  Report Type: 
  Country: None (occurrence: None)
  Receive Date: 20100108
  Receipt Date: 20100104
  Transmission Date: 20100710
  Serious: Yes (Other)
  Sender: FDA-Public Use
  Company Number: FR-ROCHE-677550

PATIENT
  Sex: Female

DRUGS (13)
  1. ROCEPHIN [Suspect]
     Indication: DRUG USE FOR UNKNOWN INDICATION
     Dosage: INJECTION
     Route: 042
     Dates: start: 20080101
  2. ROCEPHIN [Suspect]
     Dosage: DOSE: 1 DOSE FORM
     Route: 042
     Dates: start: 20080701
  3. ROCEPHIN [Suspect]
     Route: 042
     Dates: start: 20080901
  4. TAVANIC [Concomitant]
     Dates: start: 20080101
  5. SECTRAL [Concomitant]
  6. TRIATEC [Concomitant]
  7. LASILIX [Concomitant]
  8. CLAMOXYL [Concomitant]
     Dates: start: 19950101
  9. CLAMOXYL [Concomitant]
     Dates: start: 20080501
  10. OFLOCET [Concomitant]
  11. ROVAMYCINE [Concomitant]
     Route: 042
  12. NOROXIN [Concomitant]
  13. NOROXIN [Concomitant]

REACTIONS (3)
  - RASH GENERALISED [None]
  - SKIN TEST NEGATIVE [None]
  - TRANSAMINASES INCREASED [None]
